FAERS Safety Report 25231676 (Version 2)
Quarter: 2025Q3

REPORT INFORMATION
  Report Type: Spontaneous
  Country: EU (occurrence: EU)
  Receive Date: 20250423
  Receipt Date: 20250803
  Transmission Date: 20251021
  Serious: Yes (Hospitalization)
  Sender: ALEXION PHARMACEUTICALS
  Company Number: EU-SANOFI-02490242

PATIENT
  Age: 6 Month
  Sex: Male

DRUGS (1)
  1. NIRSEVIMAB [Suspect]
     Active Substance: NIRSEVIMAB
     Route: 065
     Dates: start: 20241023, end: 20241023

REACTIONS (1)
  - Respiratory syncytial virus bronchitis [Not Recovered/Not Resolved]

NARRATIVE: CASE EVENT DATE: 20250407
